FAERS Safety Report 9462652 (Version 1)
Quarter: 2013Q3

REPORT INFORMATION
  Report Type: Spontaneous
  Country: GB (occurrence: GB)
  Receive Date: 20130816
  Receipt Date: 20130816
  Transmission Date: 20140515
  Serious: Yes (Other)
  Sender: FDA-Public Use
  Company Number: GB-ELI_LILLY_AND_COMPANY-GB201308002094

PATIENT
  Age: 82 Year
  Sex: Male

DRUGS (1)
  1. TERIPARATIDE [Suspect]
     Dosage: UNK

REACTIONS (1)
  - Leukaemia [Not Recovered/Not Resolved]
